FAERS Safety Report 15907507 (Version 1)
Quarter: 2019Q1

REPORT INFORMATION
  Report Type: Spontaneous
  Country: US (occurrence: US)
  Receive Date: 20190204
  Receipt Date: 20190204
  Transmission Date: 20190417
  Serious: No
  Sender: FDA-Public Use
  Company Number: US-SA-2019SA026778

PATIENT
  Age: 45 Year
  Sex: Female

DRUGS (1)
  1. SOLIQUA 100/33 [Suspect]
     Active Substance: INSULIN GLARGINE\LIXISENATIDE
     Dosage: 30 U, QD
     Route: 065
     Dates: start: 201710

REACTIONS (2)
  - Device leakage [Unknown]
  - Product odour abnormal [Unknown]
